FAERS Safety Report 7225962-9 (Version None)
Quarter: 2011Q1

REPORT INFORMATION
  Report Type: 
  Country: None (occurrence: None)
  Receive Date: 20110113
  Receipt Date: 20110111
  Transmission Date: 20110831
  Serious: Yes (Hospitalization, Disabling)
  Sender: FDA-Public Use
  Company Number: US-ABBOTT-10P-163-0689109-00

PATIENT
  Sex: Male
  Weight: 83.99 kg

DRUGS (3)
  1. QUESTRAN [Concomitant]
     Indication: PRODUCT USED FOR UNKNOWN INDICATION
  2. IMODIUM [Concomitant]
     Indication: CROHN'S DISEASE
  3. HUMIRA [Suspect]
     Indication: CROHN'S DISEASE
     Route: 058
     Dates: start: 20060101, end: 20070301

REACTIONS (9)
  - STAPHYLOCOCCAL INFECTION [None]
  - COMA [None]
  - BRAIN INJURY [None]
  - DEAFNESS [None]
  - IMMUNODEFICIENCY [None]
  - PATHOLOGICAL FRACTURE [None]
  - AMNESIA [None]
  - OSTEOMYELITIS [None]
  - LOSS OF CONSCIOUSNESS [None]
